FAERS Safety Report 25298821 (Version 1)
Quarter: 2025Q2

REPORT INFORMATION
  Report Type: Spontaneous
  Country: ES (occurrence: ES)
  Receive Date: 20250512
  Receipt Date: 20250512
  Transmission Date: 20250717
  Serious: Yes (Life-Threatening)
  Sender: TEVA
  Company Number: None

PATIENT
  Age: 32 Year
  Sex: Male
  Weight: 88 kg

DRUGS (7)
  1. GABAPENTIN [Suspect]
     Active Substance: GABAPENTIN
     Indication: Back pain
     Dosage: GABAPENTIN TEVA EFG, 90 CAPSULES
     Route: 048
     Dates: start: 20250415, end: 20250415
  2. TANONALLA [Concomitant]
     Indication: Pain
     Dosage: 20 MG/10 MG EFG 56 TABLETS
     Route: 065
     Dates: start: 20240701
  3. TANONALLA [Concomitant]
     Indication: Pain
     Dosage: (IF NECESSARY, IN THE MIDDLE OF THE DAY): PRODUCT (REPORTED)
     Route: 065
     Dates: start: 20240801
  4. LISDEXAMFETAMINE DIMESYLATE [Concomitant]
     Active Substance: LISDEXAMFETAMINE DIMESYLATE
     Indication: Attention deficit hyperactivity disorder
     Dosage: 30 CAPSULES
     Route: 065
     Dates: start: 20250201
  5. CALCIFEDIOL [Concomitant]
     Active Substance: CALCIFEDIOL
     Indication: Vitamin D decreased
     Dosage: 1 CAPSULE EACH MONTH: 10 CAPSULES (PVC/PVDC-ALUMINUM BLISTER)
     Route: 065
     Dates: start: 20240101
  6. ZOLPIDEM TARTRATE [Concomitant]
     Active Substance: ZOLPIDEM TARTRATE
     Indication: Insomnia
     Route: 065
     Dates: start: 20220101
  7. CLONIDINE [Concomitant]
     Active Substance: CLONIDINE
     Indication: Attention deficit hyperactivity disorder
     Dosage: 30 TABLETS
     Route: 065
     Dates: start: 20230901

REACTIONS (10)
  - Headache [Not Recovered/Not Resolved]
  - Suicidal ideation [Not Recovered/Not Resolved]
  - Respiratory depression [Recovering/Resolving]
  - Anxiety [Not Recovered/Not Resolved]
  - Cyanosis [Recovered/Resolved]
  - Nausea [Not Recovered/Not Resolved]
  - Bradycardia [Recovering/Resolving]
  - Irritability [Recovered/Resolved]
  - Depressed mood [Recovering/Resolving]
  - Hypotension [Recovering/Resolving]

NARRATIVE: CASE EVENT DATE: 20250415
